FAERS Safety Report 17083890 (Version 1)
Quarter: 2019Q4

REPORT INFORMATION
  Report Type: Spontaneous
  Country: US (occurrence: US)
  Receive Date: 20191127
  Receipt Date: 20191127
  Transmission Date: 20200122
  Serious: Yes (Life-Threatening, Other)
  Sender: FDA-Public Use
  Company Number: NVSC2019US046712

PATIENT
  Age: 78 Year
  Sex: Female

DRUGS (4)
  1. LEVOTHYROXINE. [Concomitant]
     Active Substance: LEVOTHYROXINE
     Indication: HYPOTHYROIDISM
     Dosage: 175(MCG DAILY)
     Route: 065
  2. AMIODARONE [Suspect]
     Active Substance: AMIODARONE
     Indication: ATRIAL FIBRILLATION
     Dosage: UNK
     Route: 065
  3. LEVOTHYROXINE. [Concomitant]
     Active Substance: LEVOTHYROXINE
     Dosage: 112 (MCG DAILY)
     Route: 065
  4. CHLORTHALIDONE. [Concomitant]
     Active Substance: CHLORTHALIDONE
     Indication: HYPERTENSION
     Dosage: UNK
     Route: 065

REACTIONS (11)
  - Cardio-respiratory distress [Unknown]
  - Somnolence [Unknown]
  - Hypothyroidism [Unknown]
  - Hyponatraemia [Unknown]
  - Swelling [Unknown]
  - Temperature intolerance [Unknown]
  - Constipation [Unknown]
  - Myxoedema coma [Unknown]
  - Hyporesponsive to stimuli [Unknown]
  - Asthenia [Unknown]
  - Lethargy [Unknown]
